FAERS Safety Report 9788228 (Version 1)
Quarter: 2013Q4

REPORT INFORMATION
  Report Type: Spontaneous
  Country: DE (occurrence: DE)
  Receive Date: 20131230
  Receipt Date: 20131230
  Transmission Date: 20140711
  Serious: Yes (Life-Threatening, Hospitalization)
  Sender: FDA-Public Use
  Company Number: GXKR2013DE003902

PATIENT
  Age: 83 Year
  Sex: Female
  Weight: 61 kg

DRUGS (3)
  1. VERAPAMIL [Suspect]
     Dosage: 240 MG, UNK
     Route: 048
  2. ELIQUIS [Interacting]
     Dosage: 2.5 MG, BID
     Route: 048
  3. METFORMIN [Concomitant]
     Dosage: 500 M, TID
     Route: 048

REACTIONS (1)
  - Subdural haemorrhage [Not Recovered/Not Resolved]
